FAERS Safety Report 8909742 (Version 1)
Quarter: 2012Q4

REPORT INFORMATION
  Report Type: 
  Country: US (occurrence: US)
  Receive Date: 20121115
  Receipt Date: 20121115
  Transmission Date: 20130627
  Serious: Yes (Hospitalization, Other)
  Sender: FDA-Public Use
  Company Number: US-ELI_LILLY_AND_COMPANY-US201211001700

PATIENT
  Sex: Female

DRUGS (7)
  1. HUMALOG LISPRO [Suspect]
     Indication: DIABETES MELLITUS
     Dosage: 5 u, tid
     Dates: start: 2010
  2. HUMALOG LISPRO [Suspect]
     Indication: DIABETES MELLITUS
     Dosage: 5 u, tid
  3. LANTUS [Concomitant]
     Dosage: UNK, each evening
  4. DRUG USED IN DIABETES [Concomitant]
     Route: 048
  5. CLONIDINE [Concomitant]
  6. NIFEDIPIN [Concomitant]
  7. HYDROCHLOROTHIAZIDE [Concomitant]

REACTIONS (4)
  - Transient ischaemic attack [Recovered/Resolved]
  - Convulsion [Recovered/Resolved]
  - Hemiparesis [Recovered/Resolved]
  - Incorrect storage of drug [Unknown]
